FAERS Safety Report 4283211-8 (Version None)
Quarter: 2004Q1

REPORT INFORMATION
  Report Type: 
  Country: None (occurrence: None)
  Receive Date: 20040129
  Receipt Date: 20040113
  Transmission Date: 20041129
  Serious: No
  Sender: FDA-Public Use
  Company Number: 2004AP00150

PATIENT
  Age: 15 Year
  Sex: Male
  Weight: 40 kg

DRUGS (1)
  1. NEXIUM [Suspect]
     Indication: BARRETT'S OESOPHAGUS
     Dosage: 40 MG BID PO
     Route: 048

REACTIONS (3)
  - DIARRHOEA [None]
  - LIPASE INCREASED [None]
  - PANCREATIC DISORDER [None]
